FAERS Safety Report 21640932 (Version 3)
Quarter: 2024Q2

REPORT INFORMATION
  Report Type: Other
  Country: CA (occurrence: None)
  Receive Date: 20221125
  Receipt Date: 20240605
  Transmission Date: 20240716
  Serious: No
  Sender: FDA-Public Use
  Company Number: CA-ROCHE-2683137

PATIENT
  Age: 42 Year
  Sex: Female

DRUGS (1)
  1. OCREVUS [Suspect]
     Active Substance: OCRELIZUMAB
     Indication: Relapsing-remitting multiple sclerosis
     Dosage: 300 MG AT DAY 0 AND 14 (IN 2 WEEKS GAP), THEN 600 MG EVERY 6 MONTH
     Route: 042
     Dates: start: 20200917

REACTIONS (7)
  - Infusion related reaction [Recovered/Resolved]
  - Fluid retention [Unknown]
  - Influenza [Recovered/Resolved]
  - Urine output decreased [Unknown]
  - Urinary tract infection [Unknown]
  - Kidney infection [Unknown]
  - Memory impairment [Unknown]

NARRATIVE: CASE EVENT DATE: 20221031
